FAERS Safety Report 7767420-9 (Version None)
Quarter: 2011Q3

REPORT INFORMATION
  Report Type: 
  Country: None (occurrence: None)
  Receive Date: 20110922
  Receipt Date: 20100817
  Transmission Date: 20111222
  Serious: Yes (Other)
  Sender: FDA-Public Use
  Company Number: US-ASTRAZENECA-2010SE38929

PATIENT
  Age: 730 Month
  Sex: Male
  Weight: 97.5 kg

DRUGS (6)
  1. SEROQUEL XR [Suspect]
     Indication: BIPOLAR DISORDER
     Route: 048
     Dates: start: 20081001, end: 20100401
  2. SEROQUEL XR [Suspect]
     Route: 048
     Dates: start: 20100701
  3. SEROQUEL XR [Suspect]
     Route: 048
     Dates: start: 20100701
  4. SEROQUEL XR [Suspect]
     Route: 048
     Dates: end: 20100701
  5. SEROQUEL XR [Suspect]
     Indication: DEPRESSION
     Route: 048
     Dates: start: 20081001, end: 20100401
  6. SEROQUEL XR [Suspect]
     Route: 048
     Dates: end: 20100701

REACTIONS (5)
  - DISTURBANCE IN SOCIAL BEHAVIOUR [None]
  - INCORRECT DOSE ADMINISTERED [None]
  - DEPRESSION [None]
  - INAPPROPRIATE SCHEDULE OF DRUG ADMINISTRATION [None]
  - DEPRESSION SUICIDAL [None]
